FAERS Safety Report 21286307 (Version 2)
Quarter: 2022Q3

REPORT INFORMATION
  Report Type: Spontaneous
  Country: US (occurrence: US)
  Receive Date: 20220902
  Receipt Date: 20220912
  Transmission Date: 20221026
  Serious: No
  Sender: FDA-Public Use
  Company Number: US-PFIZER INC-202201113565

PATIENT
  Age: 72 Year
  Sex: Female
  Weight: 70.4 kg

DRUGS (12)
  1. IBRANCE [Suspect]
     Active Substance: PALBOCICLIB
     Indication: Breast cancer female
     Dosage: 125 MG, CYCLIC (ONE TABLET DAILY FOR 21 DAYS AND THEN OFF FOR 7 DAYS)
     Dates: start: 20220802
  2. AMLODIPINE [Concomitant]
     Active Substance: AMLODIPINE BESYLATE
     Dosage: 10 MG
  3. AROMASIN [Concomitant]
     Active Substance: EXEMESTANE
     Dosage: 25 MG
  4. ARTEMETHER [Concomitant]
     Active Substance: ARTEMETHER
     Dosage: 2 MG
  5. CALCIUM WITH VITAMIN D [CALCIUM CARBONATE;COLECALCIFEROL] [Concomitant]
     Dosage: 600MG PER 400 UNITS
  6. INVEGA [Concomitant]
     Active Substance: PALIPERIDONE
     Dosage: 9 MG
  7. MELATONIN [Concomitant]
     Active Substance: MELATONIN
     Dosage: 3 MG
  8. NAPROSYN [Concomitant]
     Active Substance: NAPROXEN
     Dosage: UNK
  9. DOCUSATE [Concomitant]
     Active Substance: DOCUSATE
     Dosage: 100 MG
  10. TYLENOL [Concomitant]
     Active Substance: ACETAMINOPHEN
     Dosage: 500 MG
  11. ZYPREXA [Concomitant]
     Active Substance: OLANZAPINE
     Dosage: 20 MG
  12. ICY HOT EXTRA STRENGTH PAIN RELIEVING BALM [Concomitant]
     Dosage: UNK

REACTIONS (1)
  - Constipation [Not Recovered/Not Resolved]

NARRATIVE: CASE EVENT DATE: 20220801
